FAERS Safety Report 17390352 (Version 1)
Quarter: 2020Q1

REPORT INFORMATION
  Report Type: Spontaneous
  Country: CA (occurrence: CA)
  Receive Date: 20200207
  Receipt Date: 20200207
  Transmission Date: 20200409
  Serious: Yes (Other)
  Sender: FDA-Public Use
  Company Number: CA-TEVA-2020-CA-1179552

PATIENT
  Age: 18 Year
  Sex: Female

DRUGS (1)
  1. CLINDAMYCIN. [Suspect]
     Active Substance: CLINDAMYCIN
     Indication: TOOTH INFECTION
     Dosage: 3 DOSAGE FORMS DAILY;
     Route: 048

REACTIONS (2)
  - Oropharyngeal blistering [Unknown]
  - Oropharyngeal pain [Unknown]
